FAERS Safety Report 10231642 (Version 10)
Quarter: 2016Q2

REPORT INFORMATION
  Report Type: Report from Study
  Country: CA (occurrence: CA)
  Receive Date: 20140611
  Receipt Date: 20160428
  Transmission Date: 20160815
  Serious: Yes (Hospitalization, Other)
  Sender: FDA-Public Use
  Company Number: PHHY2012CA036601

PATIENT
  Age: 55 Year
  Sex: Female

DRUGS (6)
  1. OXAZEPAM. [Concomitant]
     Active Substance: OXAZEPAM
     Indication: PRODUCT USED FOR UNKNOWN INDICATION
     Dosage: UNK (HS)
     Route: 048
  2. SANDOSTATIN LAR DEPOT [Suspect]
     Active Substance: OCTREOTIDE ACETATE
     Indication: CARCINOID TUMOUR
     Dosage: 20 MG, QMO (EVERY 4 WEEKS)
     Route: 030
     Dates: start: 20111122
  3. SANDOSTATIN LAR DEPOT [Suspect]
     Active Substance: OCTREOTIDE ACETATE
     Dosage: 30 MG, QMO
     Route: 030
     Dates: start: 20130906
  4. SANDOSTATIN LAR DEPOT [Suspect]
     Active Substance: OCTREOTIDE ACETATE
     Dosage: 20 MG, QMO
     Route: 030
     Dates: end: 2014
  5. PANTOPRAZOLE [Concomitant]
     Active Substance: PANTOPRAZOLE SODIUM
     Indication: PRODUCT USED FOR UNKNOWN INDICATION
     Dosage: 40 MG, QD
     Route: 048
  6. VITAMIN D [Concomitant]
     Active Substance: CHOLECALCIFEROL
     Indication: PRODUCT USED FOR UNKNOWN INDICATION
     Dosage: UNK UNK, QW (EVERY WEEK)
     Route: 065

REACTIONS (18)
  - Depression [Unknown]
  - Stress [Unknown]
  - Dizziness [Unknown]
  - Dysgeusia [Unknown]
  - Cholelithiasis [Recovered/Resolved]
  - Tremor [Unknown]
  - Constipation [Unknown]
  - Chest pain [Recovered/Resolved]
  - Abdominal adhesions [Unknown]
  - Malignant neoplasm progression [Unknown]
  - Blood pressure increased [Unknown]
  - Intestinal obstruction [Unknown]
  - Hypoglycaemia [Unknown]
  - Carcinoid tumour of the stomach [Unknown]
  - Drug ineffective [Unknown]
  - Transient global amnesia [Unknown]
  - Diarrhoea [Unknown]
  - Abdominal mass [Unknown]

NARRATIVE: CASE EVENT DATE: 20120505
